FAERS Safety Report 24775950 (Version 1)
Quarter: 2024Q4

REPORT INFORMATION
  Report Type: Spontaneous
  Country: US (occurrence: US)
  Receive Date: 20241226
  Receipt Date: 20241226
  Transmission Date: 20250115
  Serious: Yes (Death)
  Sender: BRISTOL-MYERS SQUIBB COMPANY
  Company Number: US-CELGENE-USA-2016023658

PATIENT
  Age: 43 Year
  Sex: Male

DRUGS (6)
  1. ISTODAX [Suspect]
     Active Substance: ROMIDEPSIN
     Indication: Adult T-cell lymphoma/leukaemia
     Dosage: FREQUENCY TEXT: DAYS 1, 8, AND 15
     Route: 042
  2. ETOPOSIDE [Concomitant]
     Active Substance: ETOPOSIDE
     Indication: Adult T-cell lymphoma/leukaemia
  3. PREDNISONE [Concomitant]
     Active Substance: PREDNISONE
     Indication: Adult T-cell lymphoma/leukaemia
  4. VINCRISTINE [Concomitant]
     Active Substance: VINCRISTINE
     Indication: Adult T-cell lymphoma/leukaemia
  5. CISPLATIN [Concomitant]
     Active Substance: CISPLATIN
     Indication: Adult T-cell lymphoma/leukaemia
  6. ADRIAMYCIN [Concomitant]
     Active Substance: DOXORUBICIN HYDROCHLORIDE
     Indication: Adult T-cell lymphoma/leukaemia

REACTIONS (1)
  - Wound infection [Fatal]
